FAERS Safety Report 9840645 (Version 1)
Quarter: 2014Q1

REPORT INFORMATION
  Report Type: Spontaneous
  Country: US (occurrence: US)
  Receive Date: 20140124
  Receipt Date: 20140124
  Transmission Date: 20141002
  Serious: No
  Sender: FDA-Public Use
  Company Number: US-PFIZER INC-2014022114

PATIENT
  Age: 56 Year
  Sex: Female
  Weight: 88.44 kg

DRUGS (3)
  1. LYRICA [Suspect]
     Indication: NEOPLASM MALIGNANT
     Dosage: 50 MG, 2X/DAY
     Route: 048
  2. OXYCODONE [Concomitant]
     Dosage: 15 MG, UNK
  3. OXYCONTIN [Concomitant]
     Dosage: 60 MG, UNK

REACTIONS (4)
  - Off label use [Unknown]
  - Pain in extremity [Unknown]
  - Paraesthesia [Unknown]
  - Pain [Unknown]
